FAERS Safety Report 22377158 (Version 2)
Quarter: 2023Q2

REPORT INFORMATION
  Report Type: Spontaneous
  Country: JP (occurrence: JP)
  Receive Date: 20230529
  Receipt Date: 20230628
  Transmission Date: 20230721
  Serious: Yes (Hospitalization)
  Sender: FDA-Public Use
  Company Number: JP-NOVOPROD-1052502

PATIENT
  Age: 81 Year
  Sex: Female
  Weight: 43.5 kg

DRUGS (2)
  1. RYBELSUS [Suspect]
     Active Substance: SEMAGLUTIDE
     Indication: Type 2 diabetes mellitus
     Dosage: 3 MG, QD
     Route: 048
  2. RYBELSUS [Suspect]
     Active Substance: SEMAGLUTIDE
     Dosage: 7 MG, QD
     Route: 048

REACTIONS (5)
  - Spinal osteoarthritis [Unknown]
  - Condition aggravated [Unknown]
  - Weight decreased [Unknown]
  - Blood glucose increased [Unknown]
  - Drug titration error [Unknown]

NARRATIVE: CASE EVENT DATE: 20221101
